FAERS Safety Report 7747610-1 (Version None)
Quarter: 2011Q3

REPORT INFORMATION
  Report Type: 
  Country: None (occurrence: None)
  Receive Date: 20110913
  Receipt Date: 20110912
  Transmission Date: 20111222
  Serious: Yes (Other)
  Sender: FDA-Public Use
  Company Number: JP-BRACCO-005114

PATIENT
  Sex: Female
  Weight: 48 kg

DRUGS (2)
  1. IOPAMIDOL [Suspect]
     Indication: ARTERIOSCLEROSIS OBLITERANS
     Dosage: 3 ML/SEC
     Route: 042
     Dates: start: 20110808, end: 20110808
  2. IOPAMIDOL [Suspect]
     Indication: COMPUTERISED TOMOGRAM
     Dosage: 3 ML/SEC
     Route: 042
     Dates: start: 20110808, end: 20110808

REACTIONS (2)
  - CARDIO-RESPIRATORY ARREST [None]
  - LOSS OF CONSCIOUSNESS [None]
